FAERS Safety Report 23220222 (Version 1)
Quarter: 2023Q4

REPORT INFORMATION
  Report Type: Spontaneous
  Country: CN (occurrence: CN)
  Receive Date: 20231123
  Receipt Date: 20231123
  Transmission Date: 20240110
  Serious: Yes (Hospitalization)
  Sender: FDA-Public Use
  Company Number: CN-SHANGHAI JUNSHI BIOSCIENCES CO., LTD.-CN2023008646

PATIENT

DRUGS (4)
  1. TORIPALIMAB [Suspect]
     Active Substance: TORIPALIMAB
     Indication: Nasopharyngeal cancer
     Dosage: 240 MG (D1), Q3W
     Route: 041
     Dates: start: 20231028, end: 20231028
  2. NEDAPLATIN [Suspect]
     Active Substance: NEDAPLATIN
     Indication: Nasopharyngeal cancer
     Dosage: 120 MG (D2), Q3W
     Route: 041
     Dates: start: 20231029, end: 20231029
  3. DOCETAXEL [Suspect]
     Active Substance: DOCETAXEL\DOCETAXEL ANHYDROUS
     Indication: Nasopharyngeal cancer
     Dosage: 120 MG (D1), Q3W
     Route: 041
     Dates: start: 20231028, end: 20231028
  4. NIMOTUZUMAB [Concomitant]
     Active Substance: NIMOTUZUMAB
     Indication: Nasopharyngeal cancer
     Dosage: 200 MG (D1)
     Dates: start: 20231028

REACTIONS (2)
  - White blood cell count decreased [Recovering/Resolving]
  - Neutrophil count decreased [Recovering/Resolving]

NARRATIVE: CASE EVENT DATE: 20231103
